FAERS Safety Report 25976332 (Version 2)
Quarter: 2025Q4

REPORT INFORMATION
  Report Type: Spontaneous
  Country: CA (occurrence: CA)
  Receive Date: 20251029
  Receipt Date: 20251105
  Transmission Date: 20260117
  Serious: Yes (Other)
  Sender: PFIZER
  Company Number: CA-PFIZER INC-PV202500127456

PATIENT
  Age: 44 Year
  Sex: Female

DRUGS (3)
  1. IXIFI [Suspect]
     Active Substance: INFLIXIMAB-QBTX
     Indication: Crohn^s disease
     Dosage: 400 MG, 6 WEEKS
     Route: 042
     Dates: start: 20250610
  2. IXIFI [Suspect]
     Active Substance: INFLIXIMAB-QBTX
     Dosage: 400 MG (6 WEEKS)
     Route: 042
     Dates: start: 20250912
  3. IXIFI [Suspect]
     Active Substance: INFLIXIMAB-QBTX
     Dosage: 400 MG (6 WEEKS)
     Route: 042
     Dates: start: 20251027

REACTIONS (2)
  - Retinoschisis [Unknown]
  - Off label use [Unknown]

NARRATIVE: CASE EVENT DATE: 20250610
